FAERS Safety Report 6108913-X (Version None)
Quarter: 2009Q1

REPORT INFORMATION
  Report Type: 
  Country: None (occurrence: None)
  Receive Date: 20090310
  Receipt Date: 20090223
  Transmission Date: 20090719
  Serious: Yes (Death, Other)
  Sender: FDA-Public Use
  Company Number: US-BAYER-200827679NA

PATIENT
  Age: 60 Year
  Sex: Male
  Weight: 93 kg

DRUGS (39)
  1. MAGNEVIST [Suspect]
     Indication: NUCLEAR MAGNETIC RESONANCE IMAGING
     Dates: start: 20031101, end: 20031101
  2. MAGNEVIST [Suspect]
     Dates: start: 20050301, end: 20050301
  3. MAGNEVIST [Suspect]
     Dates: start: 20051001, end: 20051001
  4. MAGNEVIST [Suspect]
     Dates: start: 20060801, end: 20060801
  5. MAGNEVIST [Suspect]
     Dates: start: 20060101, end: 20060101
  6. EPOGEN [Concomitant]
  7. EPOGEN [Concomitant]
  8. CHEMOTHERAPY [Concomitant]
     Indication: MULTIPLE MYELOMA
  9. BLOOD TRANSFUSIONS [Concomitant]
     Indication: HAEMOGLOBIN ABNORMAL
  10. GLEEVEC [Concomitant]
     Dosage: TOTAL DAILY DOSE: 400 MG
  11. LISINOPRIL [Concomitant]
  12. OMEPRAZOLE [Concomitant]
  13. LYRICA [Concomitant]
  14. SENOKOT [Concomitant]
  15. LACLOTION [Concomitant]
  16. LACHYTRIN 12% LOTION [Concomitant]
     Route: 061
  17. AVELOX [Concomitant]
  18. ROXANOL [Concomitant]
  19. ATIVAN [Concomitant]
  20. TYLENOL [Concomitant]
  21. COREG [Concomitant]
  22. FUROSEMIDE [Concomitant]
  23. LIDODERM [Concomitant]
  24. NITROGLYCERIN [Concomitant]
  25. COMPAZINE [Concomitant]
  26. ZOLPIDEM [Concomitant]
  27. RAMIPRIL [Concomitant]
  28. GABAPENTIN [Concomitant]
  29. NEXIUM [Concomitant]
  30. PHOSLO [Concomitant]
  31. PRAVASTATIN SODIUM [Concomitant]
  32. FLOMAX [Concomitant]
  33. DEXAMETHASONE [Concomitant]
  34. ACYCLOVIR [Concomitant]
  35. SENSIPAR [Concomitant]
     Dosage: TOTAL DAILY DOSE: 30 MG
  36. THALIDOMIDE [Concomitant]
  37. ZOMETA [Concomitant]
  38. RENAGEL [Concomitant]
     Dates: start: 20070903
  39. REVLAMID [Concomitant]

REACTIONS (22)
  - ANXIETY [None]
  - ARTHRALGIA [None]
  - BURNING SENSATION [None]
  - DRY SKIN [None]
  - ERYTHEMA [None]
  - FIBROSIS [None]
  - GAIT DISTURBANCE [None]
  - HYPOAESTHESIA [None]
  - INJURY [None]
  - JOINT RANGE OF MOTION DECREASED [None]
  - MOTOR DYSFUNCTION [None]
  - MUSCLE SPASMS [None]
  - MYALGIA [None]
  - NEPHROGENIC SYSTEMIC FIBROSIS [None]
  - OEDEMA PERIPHERAL [None]
  - PAIN [None]
  - PAIN IN EXTREMITY [None]
  - PRURITUS [None]
  - PULMONARY FIBROSIS [None]
  - SKIN DISCOLOURATION [None]
  - SKIN HYPERTROPHY [None]
  - SKIN TIGHTNESS [None]
